FAERS Safety Report 9780906 (Version 2)
Quarter: 2014Q1

REPORT INFORMATION
  Report Type: Report from Study
  Country: HN (occurrence: HN)
  Receive Date: 20131224
  Receipt Date: 20140107
  Transmission Date: 20141002
  Serious: Yes (Death)
  Sender: FDA-Public Use
  Company Number: PHHY2013HN150132

PATIENT
  Sex: Female

DRUGS (3)
  1. GLIVEC [Suspect]
     Indication: CHRONIC MYELOID LEUKAEMIA
     Dosage: 400 MG
     Dates: start: 201304
  2. GLIVEC [Suspect]
     Dosage: 300 MG, UNK
  3. INSULIN NPH//INSULIN ISOPHANE BOVINE [Concomitant]
     Indication: DIABETES MELLITUS
     Dosage: 10/20 U

REACTIONS (3)
  - Bronchitis chronic [Fatal]
  - Leukopenia [Unknown]
  - Thrombocytopenia [Unknown]
